FAERS Safety Report 8777534 (Version 1)
Quarter: 2012Q4

REPORT INFORMATION
  Report Type: 
  Country: NL (occurrence: NL)
  Receive Date: 20120910
  Receipt Date: 20120910
  Transmission Date: 20130627
  Serious: Yes (Life-Threatening, Other)
  Sender: FDA-Public Use
  Company Number: NL-ELI_LILLY_AND_COMPANY-NL201209001455

PATIENT
  Age: 72 Year
  Sex: Male
  Weight: 80 kg

DRUGS (4)
  1. ACTOS [Suspect]
     Indication: TYPE 2 DIABETES MELLITUS
     Dosage: 30 mg, unknown
     Dates: start: 20060324, end: 201107
  2. GLIMEPIRIDE [Concomitant]
     Dosage: 2 mg, unknown
     Dates: start: 20060421
  3. AMLODIPINE MALEATE [Concomitant]
     Dosage: 5 mg, unknown
     Dates: start: 20111027
  4. INDAPAMIDE W/PERINDOPRIL [Concomitant]
     Dosage: 4/1.25
     Dates: start: 20111005

REACTIONS (1)
  - Adenocarcinoma gastric [Not Recovered/Not Resolved]
